FAERS Safety Report 12691560 (Version 1)
Quarter: 2016Q3

REPORT INFORMATION
  Report Type: Spontaneous
  Country: US (occurrence: US)
  Receive Date: 20160826
  Receipt Date: 20160826
  Transmission Date: 20161109
  Serious: No
  Sender: FDA-Public Use
  Company Number: US-TAKEDA-2016MPI007417

PATIENT
  Age: 63 Year
  Sex: Male
  Weight: 83.9 kg

DRUGS (1)
  1. NINLARO [Suspect]
     Active Substance: IXAZOMIB
     Indication: PLASMA CELL MYELOMA
     Dosage: 4 MG, 1/WEEK
     Route: 048

REACTIONS (2)
  - Off label use [Unknown]
  - No adverse event [Unknown]

NARRATIVE: CASE EVENT DATE: 20160822
